FAERS Safety Report 7273404-X (Version None)
Quarter: 2011Q1

REPORT INFORMATION
  Report Type: 
  Country: None (occurrence: None)
  Receive Date: 20110203
  Receipt Date: 20100930
  Transmission Date: 20110831
  Serious: No
  Sender: FDA-Public Use
  Company Number: US-ABBOTT-10P-163-0670640-00

PATIENT
  Sex: Female
  Weight: 64.468 kg

DRUGS (2)
  1. SYNTHROID [Suspect]
     Indication: HYPOTHYROIDISM
     Dosage: 4 FULL PILLS 3 HALF PILLS A WEEK
  2. ASPIRIN [Concomitant]
     Indication: PRODUCT USED FOR UNKNOWN INDICATION

REACTIONS (4)
  - TABLET PHYSICAL ISSUE [None]
  - FATIGUE [None]
  - PRODUCT COLOUR ISSUE [None]
  - SOMNOLENCE [None]
